FAERS Safety Report 10969314 (Version 2)
Quarter: 2015Q2

REPORT INFORMATION
  Report Type: Spontaneous
  Country: BR (occurrence: BR)
  Receive Date: 20150331
  Receipt Date: 20150529
  Transmission Date: 20150821
  Serious: Yes (Other)
  Sender: FDA-Public Use
  Company Number: BR-AMGEN-BRASP2012002569

PATIENT
  Age: 62 Year
  Sex: Male
  Weight: 75 kg

DRUGS (7)
  1. ENBREL [Suspect]
     Active Substance: ETANERCEPT
     Indication: PSORIATIC ARTHROPATHY
     Dosage: 50 MG, WEEKLY
     Route: 058
     Dates: start: 201112
  2. LOSARTAN POTASSIUM. [Concomitant]
     Active Substance: LOSARTAN POTASSIUM
     Dosage: 50 MG, 1X/DAY
     Dates: start: 2012
  3. OMEPRAZOLE. [Concomitant]
     Active Substance: OMEPRAZOLE
     Dosage: UNK
  4. ATENOLOL. [Concomitant]
     Active Substance: ATENOLOL
     Dosage: 50 MG, 1X/DAY
     Dates: start: 2012
  5. FOLIC ACID. [Concomitant]
     Active Substance: FOLIC ACID
     Dosage: UNK
  6. PREDNISONE. [Suspect]
     Active Substance: PREDNISONE
     Indication: PRODUCT USED FOR UNKNOWN INDICATION
     Dosage: UNK
     Route: 065
  7. NIMESULIDE [Concomitant]
     Active Substance: NIMESULIDE
     Dosage: UNK

REACTIONS (10)
  - Blood triglycerides increased [Recovered/Resolved]
  - Hepatic steatosis [Not Recovered/Not Resolved]
  - Drug ineffective [Recovered/Resolved]
  - Peripheral swelling [Recovered/Resolved]
  - Renal disorder [Recovered/Resolved]
  - Walking aid user [Not Recovered/Not Resolved]
  - Nephrolithiasis [Not Recovered/Not Resolved]
  - Blood creatinine increased [Recovered/Resolved]
  - Liver disorder [Recovered/Resolved]
  - Blood cholesterol increased [Recovered/Resolved]

NARRATIVE: CASE EVENT DATE: 2012
